FAERS Safety Report 10899673 (Version 6)
Quarter: 2019Q2

REPORT INFORMATION
  Report Type: Spontaneous
  Country: US (occurrence: US)
  Receive Date: 20150309
  Receipt Date: 20190614
  Transmission Date: 20190711
  Serious: No
  Sender: FDA-Public Use
  Company Number: US-PFIZER INC-2015078018

PATIENT
  Age: 65 Year
  Sex: Male
  Weight: 146 kg

DRUGS (1)
  1. AMLODIPINE BESILATE [Suspect]
     Active Substance: AMLODIPINE BESYLATE
     Indication: HYPERTENSION
     Dosage: 5 MG, DAILY
     Route: 048
     Dates: start: 20161205

REACTIONS (5)
  - Allergic reaction to excipient [Unknown]
  - Pain [Unknown]
  - Myalgia [Unknown]
  - Arthralgia [Unknown]
  - Drug hypersensitivity [Unknown]

NARRATIVE: CASE EVENT DATE: 20161225
